FAERS Safety Report 8833401 (Version 4)
Quarter: 2013Q1

REPORT INFORMATION
  Report Type: Report from Study
  Country: FR (occurrence: FR)
  Receive Date: 20121010
  Receipt Date: 20130219
  Transmission Date: 20140127
  Serious: Yes (Hospitalization, Other)
  Sender: FDA-Public Use
  Company Number: FR-UCBSA-067917

PATIENT
  Age: 42 Year
  Sex: Female
  Weight: 74 kg

DRUGS (20)
  1. CIMZIA [Suspect]
     Indication: RHEUMATOID ARTHRITIS
     Route: 058
     Dates: start: 2012, end: 20120908
  2. CIMZIA [Suspect]
     Indication: RHEUMATOID ARTHRITIS
     Route: 058
     Dates: start: 20120519, end: 2012
  3. METHOTREXATE [Concomitant]
     Indication: RHEUMATOID ARTHRITIS
     Dosage: DAILY DOSE: 20 MG WEEKLY
     Route: 048
     Dates: start: 20120204, end: 20120922
  4. METHOTREXATE [Concomitant]
     Indication: RHEUMATOID ARTHRITIS
     Dosage: 15 MG WEEKLY
     Route: 048
     Dates: start: 20111224, end: 20120203
  5. METHOTREXATE [Concomitant]
     Indication: RHEUMATOID ARTHRITIS
     Dosage: 10 MG WEEKLY
     Route: 048
     Dates: start: 20111126, end: 20111223
  6. BIPROFENID [Concomitant]
     Indication: RHEUMATOID ARTHRITIS
     Dosage: STRENGTH: 100 MG SUSTAINED RELEASE
     Route: 048
     Dates: start: 20120424, end: 201207
  7. BIPROFENID [Concomitant]
     Indication: RHEUMATOID ARTHRITIS
     Dates: start: 20120921, end: 20120927
  8. CORTANCYL [Concomitant]
     Indication: RHEUMATOID ARTHRITIS
     Dosage: DAILY DOSE: 10 MG DAILY
     Route: 048
     Dates: start: 201111
  9. CORTANCYL [Concomitant]
     Indication: RHEUMATOID ARTHRITIS
     Route: 048
     Dates: start: 201207, end: 20120920
  10. SYMBICORT [Concomitant]
     Indication: ASTHMA
     Dates: start: 2003
  11. TOPALGIC LP [Concomitant]
     Indication: RHEUMATOID ARTHRITIS
     Route: 048
     Dates: start: 20120204
  12. SPECIAFOLDINE [Concomitant]
     Route: 048
     Dates: start: 20111126, end: 20120924
  13. PROZAC [Concomitant]
     Indication: DEPRESSION
     Route: 048
     Dates: start: 201107
  14. PROZAC [Concomitant]
     Indication: DEPRESSION
     Dosage: 40 MG DAILY
     Dates: start: 20120929
  15. PARACETAMOL [Concomitant]
     Indication: RHEUMATOID ARTHRITIS
     Dosage: 1 GRAM
     Route: 048
     Dates: start: 20120204
  16. RIVOTRIL [Concomitant]
     Indication: RHEUMATOID ARTHRITIS
     Dosage: 08 DROPS PER DAY
     Route: 048
     Dates: start: 201207, end: 20120920
  17. HYDROCORTISONE [Concomitant]
     Route: 048
     Dates: start: 201207
  18. WYSTAMM [Concomitant]
     Indication: RHINITIS ALLERGIC
     Route: 048
     Dates: start: 2010
  19. VENTOLINE [Concomitant]
     Indication: ASTHMA
     Dosage: 200 MCG AS NEEDED;
     Route: 055
     Dates: start: 2003
  20. IMEXIUM [Concomitant]
     Indication: PROPHYLAXIS
     Route: 048
     Dates: start: 20120426, end: 20120928

REACTIONS (3)
  - Rheumatoid arthritis [Recovered/Resolved]
  - Hepatocellular injury [Recovered/Resolved]
  - Drug ineffective [Recovered/Resolved]
